FAERS Safety Report 5612636-0 (Version None)
Quarter: 2008Q1

REPORT INFORMATION
  Report Type: 
  Country: None (occurrence: None)
  Receive Date: 20080204
  Receipt Date: 20080201
  Transmission Date: 20080703
  Serious: Yes (Hospitalization)
  Sender: FDA-Public Use
  Company Number: D0056001A

PATIENT
  Age: 38 Year
  Sex: Female

DRUGS (8)
  1. SOSTRIL [Suspect]
     Indication: PROPHYLAXIS
     Dosage: 150MG PER DAY
     Route: 048
     Dates: start: 20040210, end: 20040301
  2. FRAGMIN [Suspect]
     Indication: THROMBOSIS PROPHYLAXIS
     Route: 058
     Dates: start: 20040210, end: 20040229
  3. DEXAMETHASONE [Suspect]
     Indication: PROPHYLAXIS
     Route: 048
     Dates: start: 20040210, end: 20040301
  4. PHENYTOIN [Suspect]
     Indication: CONVULSION
     Dates: start: 20040210
  5. ACC LONG [Suspect]
     Indication: INFECTION PROPHYLAXIS
     Dosage: 600MG IN THE MORNING
     Route: 048
     Dates: start: 20040222, end: 20040223
  6. PARAFFIN [Suspect]
     Indication: CONSTIPATION
     Route: 048
     Dates: start: 20040222, end: 20040223
  7. HEPARIN [Suspect]
     Indication: THROMBOSIS PROPHYLAXIS
     Route: 042
     Dates: start: 20040223, end: 20040223
  8. MULTIPLE MEDICATION [Concomitant]

REACTIONS (10)
  - BLISTER [None]
  - CONSTIPATION [None]
  - LACRIMATION INCREASED [None]
  - LIP EROSION [None]
  - OCULAR HYPERAEMIA [None]
  - ORAL MUCOSA EROSION [None]
  - PHOTOPHOBIA [None]
  - PRURITUS [None]
  - RASH MACULAR [None]
  - STEVENS-JOHNSON SYNDROME [None]
